FAERS Safety Report 4618318-6 (Version None)
Quarter: 2005Q1

REPORT INFORMATION
  Report Type: 
  Country: None (occurrence: None)
  Receive Date: 20050323
  Receipt Date: 20050307
  Transmission Date: 20050727
  Serious: Yes (Hospitalization)
  Sender: FDA-Public Use
  Company Number: 2005EU000447

PATIENT
  Age: 51 Year
  Sex: Male

DRUGS (2)
  1. PROGRAF [Suspect]
     Indication: LIVER TRANSPLANT
     Dosage: SEE IMAGE
  2. METHYLPREDNISOLONE [Concomitant]

REACTIONS (9)
  - AORTIC VALVE DISEASE [None]
  - CITROBACTER INFECTION [None]
  - ENDOCARDITIS [None]
  - GASTROENTERITIS ROTAVIRUS [None]
  - IMMUNOSUPPRESSANT DRUG LEVEL INCREASED [None]
  - KLEBSIELLA INFECTION [None]
  - PROCEDURAL COMPLICATION [None]
  - STAPHYLOCOCCAL SEPSIS [None]
  - WOUND INFECTION [None]
